FAERS Safety Report 5850697-4 (Version None)
Quarter: 2008Q3

REPORT INFORMATION
  Report Type: 
  Country: None (occurrence: None)
  Receive Date: 20080820
  Receipt Date: 20080818
  Transmission Date: 20090109
  Serious: Yes (Hospitalization, Other)
  Sender: FDA-Public Use
  Company Number: CA-BRISTOL-MYERS SQUIBB COMPANY-14254122

PATIENT
  Age: 17 Year
  Sex: Female

DRUGS (3)
  1. SPRYCEL [Suspect]
     Indication: ACUTE LYMPHOCYTIC LEUKAEMIA
     Dosage: DOSE REDUCED TO 70MG PER DAY IN MAR08
     Route: 048
  2. PENTAMIDINE AEROSOL [Concomitant]
  3. ATIVAN [Concomitant]

REACTIONS (3)
  - ENCEPHALITIS [None]
  - HEADACHE [None]
  - NEUTROPENIA [None]
